FAERS Safety Report 4955965-6 (Version None)
Quarter: 2006Q1

REPORT INFORMATION
  Report Type: 
  Country: None (occurrence: None)
  Receive Date: 20060328
  Receipt Date: 20060317
  Transmission Date: 20060701
  Serious: Yes (Hospitalization, Disabling)
  Sender: FDA-Public Use
  Company Number: US-MERCK-0603USA03087

PATIENT
  Age: 45 Year
  Sex: Male
  Weight: 89 kg

DRUGS (18)
  1. VIOXX [Suspect]
     Indication: ARTHRITIS
     Route: 048
     Dates: start: 20010101, end: 20040401
  2. ASPIRIN [Concomitant]
     Route: 065
  3. AGGRENOX [Concomitant]
     Route: 065
  4. HYDROCHLOROTHIAZIDE [Concomitant]
     Route: 065
  5. ACTOS [Concomitant]
     Route: 065
  6. GLYBURIDE [Concomitant]
     Route: 065
  7. GLIPIZIDE [Concomitant]
     Route: 065
  8. PRANDIN [Concomitant]
     Route: 065
  9. PRAVACHOL [Concomitant]
     Route: 065
  10. FOLIC ACID [Concomitant]
     Route: 065
  11. METFORMIN [Concomitant]
     Route: 065
  12. AVANDIA [Concomitant]
     Route: 065
  13. FOSINOPRIL SODIUM [Concomitant]
     Route: 065
  14. PLENDIL [Concomitant]
     Route: 065
  15. ATENOLOL [Concomitant]
     Route: 065
  16. ZOCOR [Concomitant]
     Route: 065
  17. PRINIVIL [Concomitant]
     Route: 065
  18. VITAMINS (UNSPECIFIED) [Concomitant]
     Route: 065

REACTIONS (5)
  - CEREBROVASCULAR ACCIDENT [None]
  - EMOTIONAL DISTRESS [None]
  - EYE DISORDER [None]
  - HYPERTENSION [None]
  - TRANSIENT ISCHAEMIC ATTACK [None]
